FAERS Safety Report 6269947-8 (Version None)
Quarter: 2009Q3

REPORT INFORMATION
  Report Type: 
  Country: None (occurrence: None)
  Receive Date: 20090714
  Receipt Date: 20090629
  Transmission Date: 20100115
  Serious: Yes (Hospitalization)
  Sender: FDA-Public Use
  Company Number: 8048631

PATIENT
  Age: 64 Year
  Sex: Female
  Weight: 97 kg

DRUGS (9)
  1. CERTOLIZUMAB FEGOL [Suspect]
     Indication: RHEUMATOID ARTHRITIS
     Dosage: 400 MG /M SC
     Route: 058
  2. CERTOLIZUAMB PEGOL [Suspect]
     Indication: RHEUMATOID ARTHRITIS
     Dosage: 400 MG /M SC
     Route: 058
     Dates: start: 20030908
  3. QUENSYL [Concomitant]
  4. OBSIDAN /00023514/ [Concomitant]
  5. AMLODIPINE [Concomitant]
  6. AMITRYPTILIN [Concomitant]
  7. LEVOTHYROXINE SODIUM [Concomitant]
  8. INHALATION THERAPY [Concomitant]
  9. PANTOPRAZOLE SODIUM [Concomitant]

REACTIONS (1)
  - SINUSITIS [None]
